FAERS Safety Report 7606433-4 (Version None)
Quarter: 2011Q3

REPORT INFORMATION
  Report Type: 
  Country: None (occurrence: None)
  Receive Date: 20110713
  Receipt Date: 20110628
  Transmission Date: 20111222
  Serious: Yes (Life-Threatening)
  Sender: FDA-Public Use
  Company Number: FI-GENENTECH-321002

PATIENT
  Sex: Female

DRUGS (4)
  1. OXIKLORIN [Concomitant]
     Indication: JUVENILE ARTHRITIS
     Dosage: 100 MG, UNK
     Route: 048
  2. SULFASALAZINE [Suspect]
     Indication: JUVENILE ARTHRITIS
     Dosage: UNK
     Route: 048
  3. MABTHERA [Suspect]
     Indication: JUVENILE ARTHRITIS
     Dosage: 1000 MG, UNK
     Route: 042
     Dates: start: 20090801, end: 20110301
  4. NALTREXONE HYDROCHLORIDE [Suspect]
     Indication: JUVENILE ARTHRITIS
     Dosage: 25 MG, 1/WEEK
     Route: 048
     Dates: start: 20110301

REACTIONS (2)
  - NEUTROPENIA [None]
  - PNEUMONIA [None]
